FAERS Safety Report 7793107-2 (Version None)
Quarter: 2011Q3

REPORT INFORMATION
  Report Type: 
  Country: None (occurrence: None)
  Receive Date: 20110929
  Receipt Date: 20110915
  Transmission Date: 20111222
  Serious: Yes (Disabling, Other)
  Sender: FDA-Public Use
  Company Number: 2011S1001179

PATIENT
  Age: 64 Year
  Sex: Male
  Weight: 77.1 kg

DRUGS (4)
  1. ADALAT [Concomitant]
  2. ENALAPRIL MALEATE [Concomitant]
  3. TANATRIL [Concomitant]
  4. LIVALO [Suspect]
     Indication: LOW DENSITY LIPOPROTEIN INCREASED
     Dosage: 2  MG, 1X, PO
     Route: 048
     Dates: start: 20110622, end: 20110728

REACTIONS (6)
  - BLOOD CREATINE PHOSPHOKINASE INCREASED [None]
  - MUSCULAR WEAKNESS [None]
  - CHROMATURIA [None]
  - HYPOAESTHESIA [None]
  - ACTIVITIES OF DAILY LIVING IMPAIRED [None]
  - MUSCULOSKELETAL PAIN [None]
